FAERS Safety Report 6290970-1 (Version None)
Quarter: 2009Q3

REPORT INFORMATION
  Report Type: 
  Country: None (occurrence: None)
  Receive Date: 20090730
  Receipt Date: 20090720
  Transmission Date: 20100115
  Serious: Yes (Other)
  Sender: FDA-Public Use
  Company Number: AU-PFIZER INC-2009247634

PATIENT
  Age: 47 Year

DRUGS (5)
  1. MORPHINE HCL ELIXIR [Suspect]
     Dosage: 20 MG, DAILY
     Route: 065
     Dates: start: 20090604, end: 20090605
  2. CEFAZOLIN [Suspect]
     Dosage: UNK
     Route: 065
     Dates: start: 20090420, end: 20090605
  3. HEPARIN SODIUM [Suspect]
     Route: 065
  4. PARACETAMOL [Suspect]
     Route: 065
  5. DROPERIDOL [Suspect]
     Route: 065

REACTIONS (6)
  - ANAPHYLACTIC REACTION [None]
  - DYSPNOEA [None]
  - FEELING ABNORMAL [None]
  - NAUSEA [None]
  - PRURITUS GENERALISED [None]
  - RASH GENERALISED [None]
